FAERS Safety Report 4681503-1 (Version None)
Quarter: 2005Q2

REPORT INFORMATION
  Report Type: 
  Country: None (occurrence: None)
  Receive Date: 20050602
  Receipt Date: 20050520
  Transmission Date: 20051028
  Serious: Yes (Other)
  Sender: FDA-Public Use
  Company Number: 2005077938

PATIENT
  Age: 82 Year
  Sex: Female
  Weight: 83.9154 kg

DRUGS (2)
  1. BEXTRA [Suspect]
     Indication: ARTHRITIS
     Dosage: 10 MG (10 MG 1 IN 1 D, ORAL)
     Route: 048
  2. AMLODIPINE BESYLATE [Concomitant]

REACTIONS (3)
  - DIZZINESS [None]
  - SENSORY DISTURBANCE [None]
  - TRANSIENT ISCHAEMIC ATTACK [None]
